APPROVED DRUG PRODUCT: BUSPIRONE HYDROCHLORIDE
Active Ingredient: BUSPIRONE HYDROCHLORIDE
Strength: 10MG
Dosage Form/Route: TABLET;ORAL
Application: A075572 | Product #002
Applicant: NESHER PHARMACEUTICALS USA LLC
Approved: Feb 27, 2002 | RLD: No | RS: No | Type: DISCN